FAERS Safety Report 5235347-2 (Version None)
Quarter: 2007Q1

REPORT INFORMATION
  Report Type: 
  Country: None (occurrence: None)
  Receive Date: 20070212
  Receipt Date: 20070208
  Transmission Date: 20070707
  Serious: Yes (Death, Life-Threatening, Hospitalization, Disabling, Other)
  Sender: FDA-Public Use
  Company Number: PHBS2007SK02487

PATIENT
  Age: 57 Year
  Sex: Female
  Weight: 77 kg

DRUGS (4)
  1. LESCOL XL [Suspect]
     Indication: DYSLIPIDAEMIA
     Route: 048
     Dates: start: 20061120, end: 20070124
  2. INSULIN [Concomitant]
  3. LOZAP [Concomitant]
     Dosage: 12.5 MG, UNK
  4. EVISTA [Concomitant]
     Indication: INFLUENZA IMMUNISATION
     Dates: start: 20061101

REACTIONS (5)
  - ABASIA [None]
  - MYALGIA [None]
  - OEDEMA PERIPHERAL [None]
  - PYREXIA [None]
  - SHOCK [None]
